FAERS Safety Report 9595999 (Version 2)
Quarter: 2013Q4

REPORT INFORMATION
  Report Type: Spontaneous
  Country: NL (occurrence: NL)
  Receive Date: 20131004
  Receipt Date: 20131009
  Transmission Date: 20140711
  Serious: Yes (Other)
  Sender: FDA-Public Use
  Company Number: NL-ASTRAZENECA-2013SE72193

PATIENT
  Age: 24854 Day
  Sex: Male
  Weight: 96 kg

DRUGS (4)
  1. METOPROLOL SUCCINATE [Suspect]
     Indication: ATRIAL FIBRILLATION
     Route: 048
     Dates: start: 2012
  2. IRBESARTAN [Suspect]
     Indication: ATRIAL FIBRILLATION
     Route: 048
     Dates: start: 20120101
  3. ATORVASTATIN CALCIUM [Suspect]
     Indication: BLOOD CHOLESTEROL INCREASED
     Route: 048
     Dates: start: 2012
  4. ESOMEPRAZOLE [Concomitant]
     Route: 048
     Dates: start: 2012

REACTIONS (4)
  - Mood swings [Not Recovered/Not Resolved]
  - Therapeutic response unexpected with drug substitution [Not Recovered/Not Resolved]
  - Palpitations [Not Recovered/Not Resolved]
  - Balance disorder [Not Recovered/Not Resolved]
